FAERS Safety Report 12234036 (Version 1)
Quarter: 2016Q2

REPORT INFORMATION
  Report Type: Spontaneous
  Country: US (occurrence: None)
  Receive Date: 20160401
  Receipt Date: 20160401
  Transmission Date: 20160815
  Serious: Yes (Life-Threatening, Disabling)
  Sender: FDA-Public Use
  Company Number: None

PATIENT
  Age: 25 Year
  Sex: Female
  Weight: 77.11 kg

DRUGS (1)
  1. NEXPLANON [Suspect]
     Active Substance: ETONOGESTREL

REACTIONS (7)
  - Dyspnoea [None]
  - Poor peripheral circulation [None]
  - Skin discolouration [None]
  - Pulmonary oedema [None]
  - Heart rate increased [None]
  - Impaired healing [None]
  - Cardiac failure congestive [None]
